FAERS Safety Report 14936387 (Version 2)
Quarter: 2018Q3

REPORT INFORMATION
  Report Type: Spontaneous
  Country: US (occurrence: US)
  Receive Date: 20180524
  Receipt Date: 20180703
  Transmission Date: 20181010
  Serious: No
  Sender: FDA-Public Use
  Company Number: US-ASTRAZENECA-2018SE58575

PATIENT
  Age: 24963 Day
  Sex: Female

DRUGS (26)
  1. FLUCONAZOLE. [Concomitant]
     Active Substance: FLUCONAZOLE
     Dosage: 150.0MG UNKNOWN
     Dates: start: 20171009
  2. NYSTATIN. [Concomitant]
     Active Substance: NYSTATIN
     Dosage: 100000 UNIT/GRAM
     Route: 061
     Dates: start: 20180307
  3. SYNTHROID [Concomitant]
     Active Substance: LEVOTHYROXINE SODIUM
     Dosage: 150.0UG UNKNOWN
     Dates: start: 20171007
  4. TERBINAFINE HYDROCHLORIDE. [Concomitant]
     Active Substance: TERBINAFINE HYDROCHLORIDE
     Dates: start: 20170323
  5. ELIQUIS [Concomitant]
     Active Substance: APIXABAN
     Dosage: 5.0MG UNKNOWN
     Dates: start: 20180324
  6. SYNTHROID [Concomitant]
     Active Substance: LEVOTHYROXINE SODIUM
     Dosage: 200.0UG UNKNOWN
     Dates: start: 20180312
  7. BYDUREON BCISE [Suspect]
     Active Substance: EXENATIDE
     Indication: TYPE 2 DIABETES MELLITUS
     Route: 058
     Dates: start: 20180406
  8. CEFUROXIME AXETIL. [Concomitant]
     Active Substance: CEFUROXIME AXETIL
     Dosage: 500.0MG UNKNOWN
     Dates: start: 20171102
  9. SYNTHROID [Concomitant]
     Active Substance: LEVOTHYROXINE SODIUM
     Dosage: 125.0UG UNKNOWN
     Dates: start: 20170322
  10. TRIAMCINOLONE ACETONIDE. [Concomitant]
     Active Substance: TRIAMCINOLONE ACETONIDE
     Route: 061
     Dates: start: 20171114
  11. HYDROCORTISONE. [Concomitant]
     Active Substance: HYDROCORTISONE
     Dosage: 2.5% UNKNOWN
     Route: 061
     Dates: start: 20171114
  12. JARDIANCE [Concomitant]
     Active Substance: EMPAGLIFLOZIN
  13. OMEGA?3 ACID ETHYL ESTERS [Concomitant]
     Active Substance: OMEGA-3-ACID ETHYL ESTERS
     Dates: start: 20180314
  14. POTASSIUM CHLORIDE. [Concomitant]
     Active Substance: POTASSIUM CHLORIDE
     Dates: start: 20180323
  15. SYNTHROID [Concomitant]
     Active Substance: LEVOTHYROXINE SODIUM
     Dosage: 137.0UG UNKNOWN
     Dates: start: 20170602
  16. CIPROFLOXACIN. [Concomitant]
     Active Substance: CIPROFLOXACIN
     Dosage: 500.0MG UNKNOWN
     Dates: start: 20171102
  17. DIGOXIN. [Concomitant]
     Active Substance: DIGOXIN
     Dosage: 250.0UG UNKNOWN
     Dates: start: 20180214
  18. NITROFURANTOIN. [Concomitant]
     Active Substance: NITROFURANTOIN
     Dates: start: 20171229
  19. CARTIA XT [Concomitant]
     Active Substance: DILTIAZEM HYDROCHLORIDE
     Dosage: 240.0MG UNKNOWN
     Dates: start: 20180319
  20. JANUVIA [Concomitant]
     Active Substance: SITAGLIPTIN PHOSPHATE
     Dosage: 100.0MG UNKNOWN
     Dates: start: 20180205
  21. LISINOPRIL. [Suspect]
     Active Substance: LISINOPRIL
     Dosage: 10.0MG UNKNOWN
     Route: 048
     Dates: start: 20180131
  22. METOPROLOL SUCCINATE. [Suspect]
     Active Substance: METOPROLOL SUCCINATE
     Dosage: 50.0MG UNKNOWN
     Route: 048
     Dates: start: 20180128
  23. FUROSEMIDE. [Concomitant]
     Active Substance: FUROSEMIDE
     Dosage: 80.0MG UNKNOWN
     Dates: start: 20180119
  24. ATORVASTATIN [Concomitant]
     Active Substance: ATORVASTATIN
     Dosage: 20.0MG UNKNOWN
     Dates: start: 20180310
  25. CLOBETASOL [Concomitant]
     Active Substance: CLOBETASOL
     Dosage: 0.05% UNKNOWN
     Dates: start: 20171114
  26. FLUCONAZOLE. [Concomitant]
     Active Substance: FLUCONAZOLE
     Dosage: 100.0MG UNKNOWN
     Dates: start: 20171212

REACTIONS (4)
  - Underdose [Unknown]
  - Injection site pain [Unknown]
  - Diabetes mellitus inadequate control [Unknown]
  - Device issue [Unknown]

NARRATIVE: CASE EVENT DATE: 20180406
